FAERS Safety Report 8113828-1 (Version None)
Quarter: 2012Q1

REPORT INFORMATION
  Report Type: 
  Country: None (occurrence: None)
  Receive Date: 20120203
  Receipt Date: 20120130
  Transmission Date: 20120608
  Serious: Yes (Death, Hospitalization, Other)
  Sender: FDA-Public Use
  Company Number: PHHY2011IL47773

PATIENT
  Age: 50 Year
  Sex: Male

DRUGS (5)
  1. AFINITOR [Suspect]
     Dosage: 10 MG, PER DAY
     Route: 048
     Dates: start: 20110803
  2. PREGABALIN [Concomitant]
     Dosage: 150 MGX2/DAY
     Route: 048
  3. AMITRIPTYLINE HCL [Concomitant]
  4. RADIATION THERAPY [Concomitant]
  5. AFINITOR [Suspect]
     Indication: METASTATIC RENAL CELL CARCINOMA
     Dosage: 10 MG, PER DAY
     Route: 048
     Dates: start: 20100901, end: 20110615

REACTIONS (12)
  - LUNG INFECTION [None]
  - BODY TEMPERATURE INCREASED [None]
  - DYSPNOEA [None]
  - OEDEMA PERIPHERAL [None]
  - DIABETES MELLITUS [None]
  - CYANOSIS [None]
  - PNEUMONITIS [None]
  - WHEEZING [None]
  - PULMONARY MASS [None]
  - OBSTRUCTIVE AIRWAYS DISORDER [None]
  - RESPIRATORY FAILURE [None]
  - METASTASES TO LUNG [None]
